FAERS Safety Report 7969301 (Version 2)
Quarter: 2013Q1

REPORT INFORMATION
  Report Type: Spontaneous
  Country: US (occurrence: US)
  Receive Date: 20110601
  Receipt Date: 20130328
  Transmission Date: 20140127
  Serious: Yes (Other)
  Sender: FDA-Public Use
  Company Number: US-AMGEN-USASP2011026677

PATIENT
  Age: 46 Year
  Sex: Female
  Weight: 77.1 kg

DRUGS (2)
  1. ENBREL [Suspect]
     Indication: PSORIATIC ARTHROPATHY
     Dosage: 50 MG, 2 TIMES/WK
     Route: 058
     Dates: start: 20110325, end: 20110428
  2. ENBREL [Suspect]
     Indication: PSORIASIS

REACTIONS (6)
  - Swelling face [Recovered/Resolved]
  - Rash [Recovered/Resolved]
  - Injection site erythema [Unknown]
  - Injection site pruritus [Unknown]
  - Injection site urticaria [Unknown]
  - Injection site pain [Unknown]
